FAERS Safety Report 13117087 (Version 2)
Quarter: 2017Q1

REPORT INFORMATION
  Report Type: Report from Study
  Country: BR (occurrence: BR)
  Receive Date: 20170116
  Receipt Date: 20170120
  Transmission Date: 20170428
  Serious: Yes (Life-Threatening, Other)
  Sender: FDA-Public Use
  Company Number: PHHY2017BR004840

PATIENT
  Sex: Female
  Weight: 78 kg

DRUGS (4)
  1. FORASEQ [Suspect]
     Active Substance: BUDESONIDE\FORMOTEROL FUMARATE
     Dosage: 2 DF, QD (200 MCG) (10 YEARS AGO)
     Route: 055
  2. FLUIMICIL [Concomitant]
     Active Substance: ACETYLCYSTEINE
     Indication: PRODUCTIVE COUGH
     Dosage: 2 DF, QD (5 YEARS AGO) (USES ALWAYS THAT SHE HAS VERY STRONG OUTBREAKS)
     Route: 048
  3. HISTAMINE [Concomitant]
     Active Substance: HISTAMINE
     Indication: ASTHMA
     Dosage: 1 DF, QD (10 YEARS AGO) (USES ALWAYS THAT SHE HAS VERY STRONG OUTBREAKS)
     Route: 048
  4. FORASEQ [Suspect]
     Active Substance: BUDESONIDE\FORMOTEROL FUMARATE
     Indication: ASTHMA
     Dosage: 1 DF (200 UG), TID (IN THE MORNING, IN THE AFTERNOON AND AT NIGHT)
     Route: 055

REACTIONS (6)
  - Dyspnoea [Recovered/Resolved]
  - Speech disorder [Unknown]
  - Asthma [Recovered/Resolved]
  - Fatigue [Recovered/Resolved]
  - Dizziness [Recovered/Resolved]
  - Malaise [Recovered/Resolved]
